FAERS Safety Report 14210824 (Version 1)
Quarter: 2017Q4

REPORT INFORMATION
  Report Type: Spontaneous
  Country: AR (occurrence: AR)
  Receive Date: 20171121
  Receipt Date: 20171121
  Transmission Date: 20180321
  Serious: Yes (Death, Hospitalization, Other)
  Sender: FDA-Public Use
  Company Number: AR-009507513-1710ARG007699

PATIENT
  Age: 32 Year
  Sex: Male

DRUGS (2)
  1. KEYTRUDA [Suspect]
     Active Substance: PEMBROLIZUMAB
     Indication: MALIGNANT MELANOMA
     Dosage: UNK
  2. KEYTRUDA [Suspect]
     Active Substance: PEMBROLIZUMAB
     Dosage: UNK
     Dates: start: 201709, end: 2017

REACTIONS (8)
  - Thrombocytopenia [Fatal]
  - Haematocrit decreased [Fatal]
  - Respiratory failure [Fatal]
  - Hepatitis [Not Recovered/Not Resolved]
  - Hepatic enzyme increased [Not Recovered/Not Resolved]
  - Abdominal pain [Unknown]
  - Malignant neoplasm progression [Fatal]
  - Transaminases increased [Fatal]

NARRATIVE: CASE EVENT DATE: 2017
